FAERS Safety Report 16079674 (Version 2)
Quarter: 2019Q3

REPORT INFORMATION
  Report Type: Spontaneous
  Country: US (occurrence: US)
  Receive Date: 20190315
  Receipt Date: 20190802
  Transmission Date: 20191004
  Serious: Yes (Hospitalization, Other)
  Sender: FDA-Public Use
  Company Number: US-ASTRAZENECA-2019SE39203

PATIENT
  Age: 21854 Day
  Sex: Female
  Weight: 90 kg

DRUGS (16)
  1. TRAVATAN [Concomitant]
     Active Substance: TRAVOPROST
  2. HYDRALAZINE [Concomitant]
     Active Substance: HYDRALAZINE HYDROCHLORIDE
  3. AUGMENTIN [Concomitant]
     Active Substance: AMOXICILLIN\CLAVULANATE POTASSIUM
  4. LISINOPRIL. [Concomitant]
     Active Substance: LISINOPRIL
  5. FUROSEMIDE. [Concomitant]
     Active Substance: FUROSEMIDE
  6. CARVEDILOL. [Concomitant]
     Active Substance: CARVEDILOL
  7. OSELTAMIVIR [Concomitant]
     Active Substance: OSELTAMIVIR
  8. TRAVATAN [Concomitant]
     Active Substance: TRAVOPROST
  9. ATENOLOL. [Concomitant]
     Active Substance: ATENOLOL
  10. AMOXICILLIN. [Concomitant]
     Active Substance: AMOXICILLIN
  11. CIPROFLOXACIN. [Concomitant]
     Active Substance: CIPROFLOXACIN
  12. LEVOCETIRIZINE [Concomitant]
     Active Substance: LEVOCETIRIZINE
  13. AZITHROMYCIN ANHYDROUS. [Concomitant]
     Active Substance: AZITHROMYCIN ANHYDROUS
  14. CELECOXIB. [Concomitant]
     Active Substance: CELECOXIB
  15. KOMBIGLYZE XR [Suspect]
     Active Substance: METFORMIN HYDROCHLORIDE\SAXAGLIPTIN HYDROCHLORIDE
     Indication: TYPE 2 DIABETES MELLITUS
     Dosage: 5-1000 MG TABLET
     Route: 048
     Dates: start: 20140117, end: 20180226
  16. ATORVASTATIN [Concomitant]
     Active Substance: ATORVASTATIN

REACTIONS (4)
  - Cardiac failure [Unknown]
  - Acute left ventricular failure [Unknown]
  - Acute respiratory failure [Unknown]
  - Cardiac failure congestive [Unknown]

NARRATIVE: CASE EVENT DATE: 20171222
